FAERS Safety Report 12135808 (Version 3)
Quarter: 2016Q2

REPORT INFORMATION
  Report Type: Spontaneous
  Country: CA (occurrence: CA)
  Receive Date: 20160302
  Receipt Date: 20160412
  Transmission Date: 20160815
  Serious: Yes (Other)
  Sender: FDA-Public Use
  Company Number: CA-BEH-2016059261

PATIENT
  Age: 72 Year
  Sex: Female
  Weight: 75 kg

DRUGS (13)
  1. LASIX [Concomitant]
     Active Substance: FUROSEMIDE
     Route: 042
     Dates: start: 20150922
  2. ZINC [Concomitant]
     Active Substance: ZINC\ZINC CHLORIDE
  3. TYLENOL [Concomitant]
     Active Substance: ACETAMINOPHEN
  4. PRIVIGEN [Suspect]
     Active Substance: HUMAN IMMUNOGLOBULIN G
     Indication: WEST NILE VIRUS TEST POSITIVE
     Dosage: INFUSION RATE: START 180 ML/H, END 180 ML/H.
     Route: 042
     Dates: start: 20150922, end: 20150926
  5. ZANTAC [Concomitant]
     Active Substance: RANITIDINE HYDROCHLORIDE
  6. ASC ACID [Concomitant]
  7. PRIVIGEN [Suspect]
     Active Substance: HUMAN IMMUNOGLOBULIN G
     Indication: DERMATOMYOSITIS
     Dosage: INFUSION RATE: START 23 ML/H, END 180 ML/H.
     Route: 042
     Dates: start: 20150922, end: 20150926
  8. LOVENOX [Concomitant]
     Active Substance: ENOXAPARIN SODIUM
  9. PRIVIGEN [Suspect]
     Active Substance: HUMAN IMMUNOGLOBULIN G
     Indication: MULTIFOCAL MOTOR NEUROPATHY
     Dosage: INFUSION RATE: START 23 ML/H, END 180 ML/H.
     Route: 042
     Dates: start: 20150922, end: 20150926
  10. NACL [Concomitant]
     Active Substance: SODIUM CHLORIDE
  11. COLACE [Concomitant]
     Active Substance: DOCUSATE SODIUM
  12. ACYCLOVIR. [Concomitant]
     Active Substance: ACYCLOVIR
     Route: 042
     Dates: start: 20150922
  13. DILANTIN [Concomitant]
     Active Substance: PHENYTOIN
     Route: 042
     Dates: start: 20150922

REACTIONS (5)
  - Klebsiella infection [Unknown]
  - Haemolysis [Recovered/Resolved]
  - Anti A antibody positive [Recovered/Resolved]
  - Culture urine positive [Unknown]
  - Coombs direct test positive [Recovered/Resolved]

NARRATIVE: CASE EVENT DATE: 20150922
